FAERS Safety Report 5134761-3 (Version None)
Quarter: 2006Q4

REPORT INFORMATION
  Report Type: 
  Country: None (occurrence: None)
  Receive Date: 20060831
  Receipt Date: 20060504
  Transmission Date: 20070319
  Serious: No
  Sender: FDA-Public Use
  Company Number: 2006-BP-05064BP

PATIENT
  Sex: Male

DRUGS (7)
  1. SPIRIVA [Suspect]
     Indication: CHRONIC OBSTRUCTIVE PULMONARY DISEASE
     Dosage: 18 MCG(18 MCG,1 IN 1 D),IH
     Route: 055
     Dates: start: 20050701
  2. FORADIL [Concomitant]
  3. FLONASE (FLUTICASEON PROPIONATE) [Concomitant]
  4. LIPITOR [Concomitant]
  5. SINGULAIR [Concomitant]
  6. ALLEGRA [Concomitant]
  7. ATIVAN [Concomitant]

REACTIONS (1)
  - MUSCLE DISORDER [None]
